FAERS Safety Report 25891523 (Version 1)
Quarter: 2025Q4

REPORT INFORMATION
  Report Type: Spontaneous
  Country: US (occurrence: US)
  Receive Date: 20251007
  Receipt Date: 20251007
  Transmission Date: 20260118
  Serious: Yes (Other)
  Sender: AMGEN
  Company Number: US-AMGEN-USASP2025196550

PATIENT
  Age: 5 Decade
  Sex: Female

DRUGS (3)
  1. BEVACIZUMAB [Suspect]
     Active Substance: BEVACIZUMAB
     Indication: Squamous cell carcinoma of the cervix
     Dosage: UNK
     Route: 065
  2. CARBOPLATIN [Concomitant]
     Active Substance: CARBOPLATIN
     Indication: Squamous cell carcinoma of the cervix
  3. PACLITAXEL [Concomitant]
     Active Substance: PACLITAXEL
     Indication: Squamous cell carcinoma of the cervix

REACTIONS (8)
  - Enterocutaneous fistula [Unknown]
  - Pelvic abscess [Unknown]
  - Small intestinal obstruction [Unknown]
  - Candida test positive [Unknown]
  - Abscess limb [Unknown]
  - Escherichia test positive [Unknown]
  - Enterococcus test positive [Unknown]
  - Female genital tract fistula [Unknown]
